FAERS Safety Report 7153286-7 (Version None)
Quarter: 2010Q4

REPORT INFORMATION
  Report Type: 
  Country: None (occurrence: None)
  Receive Date: 20101213
  Receipt Date: 20101203
  Transmission Date: 20110411
  Serious: Yes (Other)
  Sender: FDA-Public Use
  Company Number: BE-GENZYME-THYM-1002162

PATIENT
  Age: 16 Year
  Sex: Male

DRUGS (6)
  1. THYMOGLOBULIN [Suspect]
     Indication: PROPHYLAXIS AGAINST GRAFT VERSUS HOST DISEASE
     Dosage: 10 MG/KG, UNK
     Route: 042
  2. TOTAL BODY IRRADIATION [Concomitant]
     Indication: BONE MARROW CONDITIONING REGIMEN
     Dosage: 12 OTHER, UNK
  3. ETOPOSIDE [Concomitant]
     Indication: BONE MARROW CONDITIONING REGIMEN
     Dosage: 60 MG/KG, UNK
  4. CYCLOSPORINE [Concomitant]
     Indication: PROPHYLAXIS AGAINST GRAFT VERSUS HOST DISEASE
  5. METHOTREXATE [Concomitant]
     Indication: PROPHYLAXIS AGAINST GRAFT VERSUS HOST DISEASE
     Dosage: 10 MG/M2, UNK
     Route: 042
  6. FOLINIC ACID [Concomitant]
     Indication: PROPHYLAXIS AGAINST GRAFT VERSUS HOST DISEASE
     Dosage: 15 MG/M2, UNK

REACTIONS (7)
  - ACUTE GRAFT VERSUS HOST DISEASE IN SKIN [None]
  - CYTOMEGALOVIRUS INFECTION [None]
  - FIBROMA [None]
  - GLUCOSE TOLERANCE IMPAIRED [None]
  - GRAFT VERSUS HOST DISEASE [None]
  - HYPERTENSION [None]
  - ORAL CANDIDIASIS [None]
